FAERS Safety Report 10595360 (Version 1)
Quarter: 2014Q4

REPORT INFORMATION
  Report Type: Spontaneous
  Country: US (occurrence: None)
  Receive Date: 20141119
  Receipt Date: 20141119
  Transmission Date: 20150529
  Serious: Yes (Life-Threatening, Hospitalization, Disabling)
  Sender: FDA-Public Use
  Company Number: None

PATIENT
  Age: 26 Year
  Sex: Female
  Weight: 63.5 kg

DRUGS (1)
  1. DEPO-PROVERA [Suspect]
     Active Substance: MEDROXYPROGESTERONE ACETATE
     Indication: CONTRACEPTION
     Dosage: DEPOSIT PROVERA INTO THE MUSCLE
     Route: 030
     Dates: start: 20140710, end: 20141010

REACTIONS (2)
  - Suicidal ideation [None]
  - Depressed mood [None]

NARRATIVE: CASE EVENT DATE: 20141021
